FAERS Safety Report 20677133 (Version 1)
Quarter: 2022Q2

REPORT INFORMATION
  Report Type: Spontaneous
  Country: US (occurrence: US)
  Receive Date: 20220406
  Receipt Date: 20220406
  Transmission Date: 20220720
  Serious: Yes (Hospitalization)
  Sender: FDA-Public Use
  Company Number: US-SANOFI-01041924

PATIENT
  Age: 61 Year
  Sex: Female

DRUGS (1)
  1. ADMELOG [Suspect]
     Active Substance: INSULIN LISPRO
     Indication: Type 2 diabetes mellitus
     Dosage: UNK UNK, TID

REACTIONS (6)
  - Vestibular disorder [Unknown]
  - Amnesia [Unknown]
  - Confusional state [Unknown]
  - Tinnitus [Unknown]
  - Weight increased [Unknown]
  - Peripheral swelling [Unknown]
